FAERS Safety Report 8816690 (Version 2)
Quarter: 2013Q1

REPORT INFORMATION
  Report Type: Spontaneous
  Country: US (occurrence: None)
  Receive Date: 20120928
  Receipt Date: 20121026
  Transmission Date: 20140127
  Serious: Yes (Hospitalization, Other)
  Sender: FDA-Public Use
  Company Number: 2012-4393

PATIENT
  Age: 53 Year
  Sex: Male

DRUGS (7)
  1. SOMATULINE DEPOT INJECTION (90MG)(SOMATULINE SR)(LANREOTIDE)(LANREOTIDE ACETATE) [Suspect]
     Indication: ACROMEGALY
     Dosage: 90 MG (90 MG. 1 IN 28 D), SUBCUTANEOUS
     Dates: start: 20120229, end: 201208
  2. LEVOTHYROXINE(LEVOTHYROXINE) [Concomitant]
  3. MULTIVITAMIN (MULTIVITAMIN) [Concomitant]
  4. BABY ASPIRIN(ACETYLSALICYLIC ACID) [Concomitant]
  5. FERROUS SULPHATE(FERROUS SULFATE) [Concomitant]
  6. SENNA(SENNA ALEXANDRINA) [Concomitant]
  7. TYLENOL(PARACETAMOL) [Concomitant]

REACTIONS (8)
  - Grand mal convulsion [None]
  - Anxiety [None]
  - Treatment noncompliance [None]
  - Depression [None]
  - Frustration [None]
  - Drug ineffective [None]
  - Insulin-like growth factor increased [None]
  - Growth hormone-producing pituitary tumour [None]
